FAERS Safety Report 10751624 (Version 2)
Quarter: 2015Q1

REPORT INFORMATION
  Report Type: Spontaneous
  Country: US (occurrence: US)
  Receive Date: 20150130
  Receipt Date: 20150217
  Transmission Date: 20150721
  Serious: Yes (Death, Hospitalization)
  Sender: FDA-Public Use
  Company Number: US-ACTELION-A-US2015-111882

PATIENT
  Age: 68 Year
  Sex: Female

DRUGS (3)
  1. VELETRI [Suspect]
     Active Substance: EPOPROSTENOL
     Indication: PULMONARY ARTERIAL HYPERTENSION
     Dosage: UNK
     Route: 042
     Dates: start: 20150106
  2. LETAIRIS [Concomitant]
     Active Substance: AMBRISENTAN
  3. ADCIRCA [Concomitant]
     Active Substance: TADALAFIL

REACTIONS (3)
  - Central nervous system haemorrhage [Fatal]
  - Pulmonary arterial hypertension [Unknown]
  - Right ventricular failure [Unknown]

NARRATIVE: CASE EVENT DATE: 20150116
